FAERS Safety Report 8792776 (Version 2)
Quarter: 2012Q4

REPORT INFORMATION
  Report Type: 
  Country: US (occurrence: US)
  Receive Date: 20120918
  Receipt Date: 20121130
  Transmission Date: 20130627
  Serious: No
  Sender: FDA-Public Use
  Company Number: US-B.I. PHARMACEUTICALS,INC./RIDGEFIELD-2012-BP-22408BP

PATIENT
  Age: 70 None
  Sex: Female
  Weight: 77 kg

DRUGS (7)
  1. COMBIVENT [Suspect]
     Indication: DYSPNOEA
     Route: 055
     Dates: start: 2008
  2. NASONEX [Concomitant]
     Indication: HOUSE DUST ALLERGY
     Dates: start: 2008
  3. VITAMIN D [Concomitant]
     Indication: SUPPLEMENTATION THERAPY
     Dosage: 2000 U
     Route: 048
     Dates: start: 2009
  4. ZYRTEC [Concomitant]
     Indication: HYPERSENSITIVITY
     Dates: start: 2000
  5. ADVAIR [Concomitant]
     Indication: DYSPNOEA
     Dosage: (Inhalation Spray) Strength: 250/50; Daily Dose: 250/50
     Route: 055
     Dates: start: 2008
  6. LISINOPRIL [Concomitant]
     Indication: HYPERTENSION
     Dosage: 5 mg
     Route: 048
     Dates: start: 2009
  7. VENTOLIN [Concomitant]
     Indication: INHALATION THERAPY
     Dates: start: 2008

REACTIONS (3)
  - Dizziness [Recovered/Resolved]
  - Headache [Not Recovered/Not Resolved]
  - Product quality issue [Recovered/Resolved]
